FAERS Safety Report 10043100 (Version 3)
Quarter: 2014Q2

REPORT INFORMATION
  Report Type: Report from Study
  Country: US (occurrence: US)
  Receive Date: 20140328
  Receipt Date: 20140529
  Transmission Date: 20141212
  Serious: Yes (Hospitalization, Other)
  Sender: FDA-Public Use
  Company Number: US-BIOGENIDEC-2014BI028428

PATIENT
  Age: 27 Year
  Sex: Female

DRUGS (4)
  1. AVONEX [Suspect]
     Indication: MULTIPLE SCLEROSIS
     Route: 030
     Dates: start: 20140312
  2. AVONEX [Suspect]
     Indication: MULTIPLE SCLEROSIS
     Route: 030
     Dates: start: 20140321
  3. AVONEX [Suspect]
     Indication: MULTIPLE SCLEROSIS
     Route: 030
  4. ALEVE [Concomitant]
     Indication: PREMEDICATION

REACTIONS (12)
  - Cardiac arrest [Unknown]
  - Hypersensitivity [Recovered/Resolved]
  - Abasia [Recovered/Resolved]
  - Memory impairment [Not Recovered/Not Resolved]
  - Cardiac disorder [Not Recovered/Not Resolved]
  - Drug intolerance [Recovered/Resolved]
  - Injection site warmth [Recovered/Resolved]
  - Hypoaesthesia [Not Recovered/Not Resolved]
  - Influenza like illness [Recovered/Resolved]
  - Injection site pain [Recovered/Resolved]
  - Injection site erythema [Recovered/Resolved]
  - Bone pain [Not Recovered/Not Resolved]
